FAERS Safety Report 5912304-1 (Version None)
Quarter: 2008Q4

REPORT INFORMATION
  Report Type: 
  Country: None (occurrence: None)
  Receive Date: 20081008
  Receipt Date: 20080930
  Transmission Date: 20090506
  Serious: Yes (Death)
  Sender: FDA-Public Use
  Company Number: FI-ROCHE-589057

PATIENT
  Age: 16 Year
  Sex: Male

DRUGS (2)
  1. ROACCUTAN [Suspect]
     Indication: ACNE
     Dosage: THE PATIENT WAS DISPENSED ACCUTANE 20 MG CAPSULE IN MAR 2002.
     Route: 048
     Dates: start: 20020301
  2. ROACCUTAN [Suspect]
     Route: 048
     Dates: end: 20030301

REACTIONS (3)
  - COMPLETED SUICIDE [None]
  - DRY SKIN [None]
  - NAIL INFECTION [None]
